FAERS Safety Report 14853746 (Version 2)
Quarter: 2019Q4

REPORT INFORMATION
  Report Type: Spontaneous
  Country: FR (occurrence: FR)
  Receive Date: 20180507
  Receipt Date: 20191119
  Transmission Date: 20200122
  Serious: Yes (Hospitalization)
  Sender: FDA-Public Use
  Company Number: FR-PFIZER INC-2018183508

PATIENT
  Age: 75 Year
  Sex: Male
  Weight: 69 kg

DRUGS (8)
  1. GEMCITABINE ACCORD [Suspect]
     Active Substance: GEMCITABINE HYDROCHLORIDE
     Indication: RENAL CANCER METASTATIC
     Dosage: 1 DF, CYCLIC
     Route: 041
     Dates: start: 20171208
  2. DOLIPRANE [Concomitant]
     Active Substance: ACETAMINOPHEN
     Dosage: UNK
     Route: 048
  3. MOVICOL [Concomitant]
     Active Substance: POLYETHYLENE GLYCOL 3350\POTASSIUM CHLORIDE\SODIUM BICARBONATE\SODIUM CHLORIDE
     Dosage: UNK
     Route: 048
  4. XARELTO [Suspect]
     Active Substance: RIVAROXABAN
     Indication: PHLEBITIS
     Dosage: 20 MG, 1X/DAY
     Route: 048
  5. ESOMEPRAZOLE. [Concomitant]
     Active Substance: ESOMEPRAZOLE MAGNESIUM
     Dosage: UNK
     Route: 048
  6. CARBOPLATINE HOSPIRA [Suspect]
     Active Substance: CARBOPLATIN
     Indication: RENAL CANCER METASTATIC
     Dosage: 1 DF, CYCLIC
     Route: 041
     Dates: start: 20171208
  7. SMECTA [Concomitant]
     Active Substance: MONTMORILLONITE
     Dosage: UNK
     Route: 048
  8. VOGALENE [Concomitant]
     Active Substance: METOPIMAZINE
     Dosage: UNK
     Route: 060

REACTIONS (4)
  - Anaemia [Recovered/Resolved]
  - Thrombocytopenia [Recovered/Resolved]
  - Haemoptysis [Recovered/Resolved]
  - Epistaxis [Recovered/Resolved]

NARRATIVE: CASE EVENT DATE: 20180108
